FAERS Safety Report 6824710-1 (Version None)
Quarter: 2010Q3

REPORT INFORMATION
  Report Type: 
  Country: None (occurrence: None)
  Receive Date: 20100708
  Receipt Date: 20070320
  Transmission Date: 20110219
  Serious: No
  Sender: FDA-Public Use
  Company Number: US-PFIZER INC-2006143236

PATIENT
  Sex: Male

DRUGS (12)
  1. CHANTIX [Suspect]
     Dates: start: 20060801
  2. PREVACID [Concomitant]
     Dosage: PRN
  3. METFORMIN HCL [Concomitant]
  4. DIGITEK [Concomitant]
  5. ATACAND [Concomitant]
     Dosage: 32/12.5 MILLIGRAMS
  6. COREG [Concomitant]
  7. VERAPAMIL [Concomitant]
  8. HYDROCHLOROTHIAZIDE [Concomitant]
  9. NEXIUM [Concomitant]
     Dosage: PRN
  10. ASPIRIN [Concomitant]
  11. CALCIUM CARBONATE [Concomitant]
     Dosage: DAILY
  12. FISH OIL [Concomitant]
     Dosage: BID

REACTIONS (2)
  - CONSTIPATION [None]
  - GASTROINTESTINAL PAIN [None]
